FAERS Safety Report 21634360 (Version 1)
Quarter: 2022Q4

REPORT INFORMATION
  Report Type: Report from Study
  Country: US (occurrence: US)
  Receive Date: 20221123
  Receipt Date: 20221123
  Transmission Date: 20230112
  Serious: No
  Sender: FDA-Public Use
  Company Number: US-ABBVIE-4175958

PATIENT
  Sex: Female

DRUGS (2)
  1. SKYRIZI [Suspect]
     Active Substance: RISANKIZUMAB-RZAA
     Indication: Psoriasis
     Dosage: WEEK FOUR, 150 MILLIGRAM/MILLILITERS
     Route: 058
     Dates: start: 20220819
  2. SKYRIZI [Suspect]
     Active Substance: RISANKIZUMAB-RZAA
     Dosage: WEEK ZERO?FIRST ADMINISTRATION DATE WAS 2022
     Route: 058

REACTIONS (1)
  - Fatigue [Unknown]
